FAERS Safety Report 4421547-8 (Version None)
Quarter: 2004Q3

REPORT INFORMATION
  Report Type: 
  Country: None (occurrence: None)
  Receive Date: 20040804
  Receipt Date: 20040721
  Transmission Date: 20050211
  Serious: Yes (Life-Threatening)
  Sender: FDA-Public Use
  Company Number: WAES 0407USA01835

PATIENT
  Age: 82 Year
  Sex: Female

DRUGS (4)
  1. FOSAMAX [Suspect]
     Indication: OSTEOPOROSIS
     Dosage: 5 MG / DAILY PO
     Route: 048
     Dates: start: 20031114
  2. DIAZEPAM [Concomitant]
  3. MUCOSOLVAN [Concomitant]
  4. SPIROPENT [Concomitant]

REACTIONS (2)
  - HAEMOGLOBIN DECREASED [None]
  - REFLUX OESOPHAGITIS [None]
